FAERS Safety Report 14769439 (Version 1)
Quarter: 2018Q2

REPORT INFORMATION
  Report Type: Spontaneous
  Country: US (occurrence: US)
  Receive Date: 20180411
  Receipt Date: 20180411
  Transmission Date: 20180711
  Serious: Yes (Hospitalization)
  Sender: FDA-Public Use
  Company Number: None

PATIENT
  Age: 73 Year
  Sex: Female

DRUGS (6)
  1. IBRANCE [Suspect]
     Active Substance: PALBOCICLIB
     Indication: LUNG NEOPLASM MALIGNANT
     Route: 048
     Dates: start: 20171208
  2. EXEMSTANE [Concomitant]
  3. TRIAMT [Concomitant]
  4. SIMVASTATIN. [Concomitant]
     Active Substance: SIMVASTATIN
  5. ACYCLOVIR. [Concomitant]
     Active Substance: ACYCLOVIR
  6. TRIAM [Concomitant]
     Active Substance: TRIAMCINOLONE

REACTIONS (1)
  - Hospitalisation [None]
